FAERS Safety Report 10687436 (Version 1)
Quarter: 2014Q4

REPORT INFORMATION
  Report Type: Spontaneous
  Country: US (occurrence: None)
  Receive Date: 20141230
  Receipt Date: 20141230
  Transmission Date: 20150529
  Serious: Yes (Death)
  Sender: FDA-Public Use
  Company Number: INT_00596_2014

PATIENT

DRUGS (3)
  1. CARBOPLATIN. [Suspect]
     Active Substance: CARBOPLATIN
     Indication: NON-SMALL CELL LUNG CANCER
     Dosage: 5 MG/ML/MIN ON DAY 1 AND IN COMBINATION WITH GECITABINE ON DAYS 1 AND 8 EVERY 21 DAYS0 4 CYCLES INTRAVENOUS (NOT OTHERWISE SPECIFIED)?
     Route: 042
  2. PACLITAXEL. [Suspect]
     Active Substance: PACLITAXEL
     Indication: NON-SMALL CELL LUNG CANCER
     Dosage: 15 MG/M2 3X A WEEK INFUSED OVER ONE HOUR/ INTRAVENOUS (NOT OTHERWISE SPECIFIED)?
     Route: 042
  3. GEMCITABINE [Suspect]
     Active Substance: GEMCITABINE\GEMCITABINE HYDROCHLORIDE
     Indication: NON-SMALL CELL LUNG CANCER
     Dosage: 1000 MG/M2 DAYS 1 AND 8 /EVERY 21 DAYS/ 4 CYCLES INTRAVENOUS (NOT OTHERWISE SPECIFIED)?
     Route: 042

REACTIONS (1)
  - Haemoptysis [None]
